FAERS Safety Report 6850182-7 (Version None)
Quarter: 2010Q3

REPORT INFORMATION
  Report Type: 
  Country: None (occurrence: None)
  Receive Date: 20100716
  Receipt Date: 20071011
  Transmission Date: 20110219
  Serious: No
  Sender: FDA-Public Use
  Company Number: US-PFIZER INC-2007086768

PATIENT
  Sex: Male
  Weight: 102 kg

DRUGS (7)
  1. CHANTIX [Suspect]
     Indication: SMOKING CESSATION THERAPY
     Route: 048
     Dates: start: 20071001, end: 20071006
  2. DIVALPROEX SODIUM [Concomitant]
  3. LISINOPRIL [Concomitant]
     Indication: HYPERTENSION
  4. MULTI-VITAMINS [Concomitant]
  5. EXTRA STRENGTH TYLENOL [Concomitant]
  6. RISPERIDONE [Concomitant]
  7. ALL OTHER THERAPEUTIC PRODUCTS [Concomitant]
     Indication: HYPOTENSION

REACTIONS (1)
  - CONSTIPATION [None]
